FAERS Safety Report 25647798 (Version 2)
Quarter: 2025Q4

REPORT INFORMATION
  Report Type: Spontaneous
  Country: US (occurrence: US)
  Receive Date: 20250806
  Receipt Date: 20251105
  Transmission Date: 20260117
  Serious: No
  Sender: ASTELLAS
  Company Number: US-ASTELLAS-2025-AER-041992

PATIENT
  Sex: Male

DRUGS (1)
  1. PADCEV [Suspect]
     Active Substance: ENFORTUMAB VEDOTIN-EJFV
     Indication: Product used for unknown indication
     Route: 065

REACTIONS (2)
  - Skin reaction [Recovered/Resolved]
  - Infusion site extravasation [Recovered/Resolved]
